FAERS Safety Report 11083499 (Version 2)
Quarter: 2015Q2

REPORT INFORMATION
  Report Type: Spontaneous
  Country: TR (occurrence: TR)
  Receive Date: 20150501
  Receipt Date: 20150515
  Transmission Date: 20150821
  Serious: Yes (Other)
  Sender: FDA-Public Use
  Company Number: TR-ALLERGAN-1507782US

PATIENT
  Age: 51 Year
  Sex: Female

DRUGS (1)
  1. BOTOX LIYOFILIZE TOZ ICEREN FLAKON [Suspect]
     Active Substance: BOTULINUM TOXIN TYPE A
     Indication: SKIN WRINKLING
     Dosage: 8 UNITS, SINGLE
     Route: 030
     Dates: start: 20150424, end: 20150424

REACTIONS (5)
  - Asthenia [Not Recovered/Not Resolved]
  - Hypersensitivity [Unknown]
  - Palpitations [Recovered/Resolved]
  - Blood pressure increased [Unknown]
  - Hypoaesthesia [Unknown]

NARRATIVE: CASE EVENT DATE: 20150424
